FAERS Safety Report 9614964 (Version 1)
Quarter: 2013Q4

REPORT INFORMATION
  Report Type: Spontaneous
  Country: US (occurrence: None)
  Receive Date: 20131009
  Receipt Date: 20131009
  Transmission Date: 20140711
  Serious: Yes (Hospitalization)
  Sender: FDA-Public Use
  Company Number: None

PATIENT
  Age: 63 Year
  Sex: Female

DRUGS (13)
  1. FORTEO [Suspect]
     Indication: OSTEOPOROSIS
     Dosage: 600 MCG, DAILY, SUBCUTANEOUSLY
     Route: 058
     Dates: start: 20130601, end: 20130801
  2. SERTRALINE [Concomitant]
  3. MTX [Concomitant]
  4. ASMANEX [Concomitant]
  5. PREDNISONE [Concomitant]
  6. BENAZEPRIL [Concomitant]
  7. XELJANZ [Concomitant]
  8. LEUCOVORIN [Concomitant]
  9. BUPROPION [Concomitant]
  10. FOLIC ACID [Concomitant]
  11. MULTIVITAMIN [Concomitant]
  12. VITD [Concomitant]
  13. MONTELU [Concomitant]

REACTIONS (1)
  - Vertigo [None]
